FAERS Safety Report 5444489-8 (Version None)
Quarter: 2007Q3

REPORT INFORMATION
  Report Type: 
  Country: None (occurrence: None)
  Receive Date: 20070830
  Receipt Date: 20070823
  Transmission Date: 20080115
  Serious: Yes (Other)
  Sender: FDA-Public Use
  Company Number: CHPA2007US08950

PATIENT
  Sex: Male
  Weight: 136.1 kg

DRUGS (1)
  1. NODOZ (NCH) (CAFFEINE) UNKNOWN [Suspect]
     Dosage: ORAL
     Route: 048

REACTIONS (1)
  - HYPERTENSION [None]
